FAERS Safety Report 12722607 (Version 3)
Quarter: 2016Q4

REPORT INFORMATION
  Report Type: Spontaneous
  Country: GB (occurrence: GB)
  Receive Date: 20160907
  Receipt Date: 20161010
  Transmission Date: 20170207
  Serious: Yes (Disabling, Other)
  Sender: FDA-Public Use
  Company Number: GB-SA-2016SA162199

PATIENT
  Age: 32 Year
  Sex: Female

DRUGS (1)
  1. LEMTRADA [Suspect]
     Active Substance: ALEMTUZUMAB
     Indication: RELAPSING-REMITTING MULTIPLE SCLEROSIS
     Dosage: FOR 5 DAYS
     Route: 041
     Dates: start: 20150727, end: 20150803

REACTIONS (3)
  - Anxiety [Unknown]
  - Cervical dysplasia [Unknown]
  - Smear cervix abnormal [Not Recovered/Not Resolved]

NARRATIVE: CASE EVENT DATE: 20160830
